FAERS Safety Report 19742919 (Version 1)
Quarter: 2021Q3

REPORT INFORMATION
  Report Type: Spontaneous
  Country: US (occurrence: US)
  Receive Date: 20210824
  Receipt Date: 20210824
  Transmission Date: 20211014
  Serious: No
  Sender: FDA-Public Use
  Company Number: US-EMERGENT BIOSOLUTIONS,-21000128SP

PATIENT

DRUGS (1)
  1. NARCAN [Suspect]
     Active Substance: NALOXONE HYDROCHLORIDE
     Indication: PRODUCT USED FOR UNKNOWN INDICATION
     Dosage: UNK
     Dates: start: 20210804, end: 20210804

REACTIONS (1)
  - Unintentional use for unapproved indication [Recovered/Resolved]

NARRATIVE: CASE EVENT DATE: 20210804
